FAERS Safety Report 16524664 (Version 1)
Quarter: 2019Q3

REPORT INFORMATION
  Report Type: Spontaneous
  Country: BR (occurrence: BR)
  Receive Date: 20190703
  Receipt Date: 20190703
  Transmission Date: 20191004
  Serious: Yes (Other)
  Sender: FDA-Public Use
  Company Number: BR-PFIZER INC-2019277948

PATIENT
  Sex: Female

DRUGS (1)
  1. LIPITOR [Suspect]
     Active Substance: ATORVASTATIN CALCIUM
     Indication: BLOOD CHOLESTEROL ABNORMAL
     Dosage: 20 MG, 2X/DAY (ONE TABLET IN THE MORNING AND OTHER AT NIGHT)

REACTIONS (8)
  - Drug ineffective [Unknown]
  - Tendon injury [Unknown]
  - Glaucoma [Unknown]
  - Skeletal injury [Unknown]
  - Tendon rupture [Unknown]
  - Pain [Unknown]
  - Arthropathy [Unknown]
  - Hypokinesia [Unknown]

NARRATIVE: CASE EVENT DATE: 2016
